FAERS Safety Report 24211723 (Version 1)
Quarter: 2024Q3

REPORT INFORMATION
  Report Type: Spontaneous
  Country: US (occurrence: None)
  Receive Date: 20240810
  Receipt Date: 20240810
  Transmission Date: 20241017
  Serious: Yes (Life-Threatening)
  Sender: Public
  Company Number: None

PATIENT
  Age: 72 Year
  Sex: Female
  Weight: 78.75 kg

DRUGS (4)
  1. CLOSYS [Suspect]
     Active Substance: SODIUM FLUORIDE
     Indication: Tooth impacted
     Dosage: OTHER QUANTITY : 1 CAP FULL?OTHER FREQUENCY : ONCE?OTHER ROUTE : GARGLE NO RINSE AS SUGGESTED ON BOX
     Route: 050
     Dates: start: 20240720, end: 20240805
  2. SYNTHROID [Concomitant]
     Active Substance: LEVOTHYROXINE SODIUM
  3. NAPROXEN [Concomitant]
     Active Substance: NAPROXEN
  4. AMOXICILLIN [Concomitant]
     Active Substance: AMOXICILLIN

REACTIONS (2)
  - Anaphylactic shock [None]
  - Near death experience [None]

NARRATIVE: CASE EVENT DATE: 20240805
